FAERS Safety Report 7421470-0 (Version None)
Quarter: 2011Q2

REPORT INFORMATION
  Report Type: 
  Country: None (occurrence: None)
  Receive Date: 20110418
  Receipt Date: 20110301
  Transmission Date: 20111010
  Serious: No
  Sender: FDA-Public Use
  Company Number: US-JNJFOC-20110202587

PATIENT
  Sex: Female
  Weight: 117.94 kg

DRUGS (3)
  1. INVEGA SUSTENNA [Suspect]
     Indication: ILL-DEFINED DISORDER
     Route: 030
  2. INVEGA SUSTENNA [Suspect]
     Route: 030
  3. INVEGA SUSTENNA [Suspect]
     Route: 030

REACTIONS (3)
  - PRODUCT QUALITY ISSUE [None]
  - INJECTION SITE RASH [None]
  - INCORRECT DOSE ADMINISTERED [None]
